FAERS Safety Report 18380025 (Version 1)
Quarter: 2020Q4

REPORT INFORMATION
  Report Type: Spontaneous
  Country: DE (occurrence: DE)
  Receive Date: 20201014
  Receipt Date: 20201014
  Transmission Date: 20210114
  Serious: Yes (Hospitalization)
  Sender: FDA-Public Use
  Company Number: DE-TEVA-2020-DE-1836835

PATIENT
  Age: 41 Year
  Sex: Female

DRUGS (1)
  1. GLATIRAMERACETAT ABZ 40 MG/ML [Suspect]
     Active Substance: GLATIRAMER ACETATE
     Indication: MULTIPLE SCLEROSIS
     Dates: start: 201910

REACTIONS (5)
  - Foot fracture [Unknown]
  - Face injury [Unknown]
  - Ligament injury [Recovered/Resolved]
  - Fall [Unknown]
  - Balance disorder [Recovered/Resolved]

NARRATIVE: CASE EVENT DATE: 2020
